FAERS Safety Report 6762569-1 (Version None)
Quarter: 2010Q2

REPORT INFORMATION
  Report Type: 
  Country: None (occurrence: None)
  Receive Date: 20100609
  Receipt Date: 20100531
  Transmission Date: 20101027
  Serious: Yes (Other)
  Sender: FDA-Public Use
  Company Number: AU-PFIZER INC-2009237951

PATIENT
  Age: 64 Year
  Sex: Female

DRUGS (6)
  1. ZOLOFT [Suspect]
     Indication: STRESS
     Dosage: 50 MG
  2. ZOLOFT [Suspect]
     Indication: ANXIETY
  3. ZOLOFT [Suspect]
     Indication: SLEEP DISORDER
  4. SEREPAX [Concomitant]
     Dosage: UNK
  5. XANAX [Concomitant]
     Dosage: UNK
  6. FASIGYN [Concomitant]
     Indication: DIVERTICULITIS

REACTIONS (13)
  - ABDOMINAL DISCOMFORT [None]
  - ANXIETY [None]
  - CONSTIPATION [None]
  - DYSPEPSIA [None]
  - HYPERHIDROSIS [None]
  - INSOMNIA [None]
  - LUNG INFECTION [None]
  - NAUSEA [None]
  - RESTLESSNESS [None]
  - RHINORRHOEA [None]
  - WEIGHT INCREASED [None]
  - WHITE BLOOD CELL COUNT INCREASED [None]
  - YAWNING [None]
